FAERS Safety Report 11321443 (Version 2)
Quarter: 2015Q3

REPORT INFORMATION
  Report Type: Spontaneous
  Country: US (occurrence: US)
  Receive Date: 20150729
  Receipt Date: 20150803
  Transmission Date: 20151125
  Serious: No
  Sender: FDA-Public Use
  Company Number: US-ELI_LILLY_AND_COMPANY-US201507004731

PATIENT
  Age: 68 Year
  Sex: Female

DRUGS (2)
  1. HUMALOG [Suspect]
     Active Substance: INSULIN LISPRO
     Indication: DIABETES MELLITUS
     Dosage: 60 U, TID
     Route: 065
     Dates: start: 1995, end: 201412
  2. HUMALOG [Suspect]
     Active Substance: INSULIN LISPRO
     Indication: DIABETES MELLITUS
     Dosage: 60 U, TID
     Route: 065
     Dates: start: 201412

REACTIONS (5)
  - Drug dispensing error [Unknown]
  - Laceration [Unknown]
  - Incorrect dose administered by device [Unknown]
  - Malaise [Unknown]
  - Product quality issue [None]

NARRATIVE: CASE EVENT DATE: 201412
